FAERS Safety Report 6557731-7 (Version None)
Quarter: 2010Q1

REPORT INFORMATION
  Report Type: 
  Country: None (occurrence: None)
  Receive Date: 20100128
  Receipt Date: 20100128
  Transmission Date: 20100710
  Serious: Yes (Other)
  Sender: FDA-Public Use
  Company Number: None

PATIENT
  Age: 51 Year
  Sex: Female
  Weight: 91.6266 kg

DRUGS (1)
  1. LISINOPRIL AND HYDROCHLOROTHIAZIDE [Suspect]
     Indication: HYPERTENSION
     Dosage: 1 EVERY DAY
     Dates: start: 20080101

REACTIONS (6)
  - FEELING ABNORMAL [None]
  - MEDICATION ERROR [None]
  - PAIN [None]
  - PALPITATIONS [None]
  - PRODUCT QUALITY ISSUE [None]
  - PRODUCT SUBSTITUTION ISSUE [None]
